FAERS Safety Report 5752419-4 (Version None)
Quarter: 2008Q2

REPORT INFORMATION
  Report Type: 
  Country: None (occurrence: None)
  Receive Date: 20080529
  Receipt Date: 20080527
  Transmission Date: 20081010
  Serious: Yes (Death, Hospitalization)
  Sender: FDA-Public Use
  Company Number: B0515379A

PATIENT
  Age: 30 Year
  Sex: Male

DRUGS (13)
  1. ARTIST [Suspect]
     Indication: CARDIAC FAILURE
     Dosage: 1.25MG PER DAY
     Route: 048
     Dates: start: 20080221
  2. HANP [Suspect]
     Indication: CARDIAC FAILURE CONGESTIVE
     Route: 042
     Dates: start: 20080219, end: 20080301
  3. HEPARIN SODIUM [Concomitant]
     Dates: start: 20080219, end: 20080303
  4. INOVAN [Concomitant]
     Dates: start: 20080219, end: 20080302
  5. LASIX [Concomitant]
     Dates: start: 20080219, end: 20080302
  6. TRYPTANOL [Concomitant]
     Dates: end: 20080302
  7. ZYPREXA [Concomitant]
     Dates: end: 20080302
  8. TETRAMIDE [Concomitant]
     Dates: end: 20080302
  9. LENDORMIN [Concomitant]
     Dates: end: 20080302
  10. GASTER D [Concomitant]
     Dates: start: 20080219, end: 20080302
  11. ALDACTONE [Concomitant]
     Route: 048
     Dates: start: 20080221, end: 20080302
  12. DEPAS [Concomitant]
     Dates: start: 20080227, end: 20080302
  13. WARFARIN SODIUM [Concomitant]
     Dates: start: 20080228, end: 20080302

REACTIONS (26)
  - ALANINE AMINOTRANSFERASE INCREASED [None]
  - ALTERED STATE OF CONSCIOUSNESS [None]
  - ASPARTATE AMINOTRANSFERASE INCREASED [None]
  - BILIRUBIN CONJUGATED INCREASED [None]
  - BLOOD ALKALINE PHOSPHATASE INCREASED [None]
  - BLOOD CREATINE PHOSPHOKINASE INCREASED [None]
  - BLOOD CREATININE INCREASED [None]
  - BLOOD LACTATE DEHYDROGENASE INCREASED [None]
  - BLOOD PRESSURE DECREASED [None]
  - C-REACTIVE PROTEIN INCREASED [None]
  - CARDIAC ARREST [None]
  - DISSEMINATED INTRAVASCULAR COAGULATION [None]
  - DYSPNOEA [None]
  - FIBRIN D DIMER INCREASED [None]
  - HEPATITIS [None]
  - HEPATITIS FULMINANT [None]
  - HYPERKALAEMIA [None]
  - INTERNATIONAL NORMALISED RATIO INCREASED [None]
  - MYDRIASIS [None]
  - PLATELET COUNT INCREASED [None]
  - PULMONARY HAEMORRHAGE [None]
  - RENAL FAILURE ACUTE [None]
  - RESPIRATORY ARREST [None]
  - RESPIRATORY FAILURE [None]
  - VENTRICULAR TACHYCARDIA [None]
  - WHITE BLOOD CELL COUNT INCREASED [None]
